FAERS Safety Report 13740764 (Version 9)
Quarter: 2020Q3

REPORT INFORMATION
  Report Type: Report from Study
  Country: None (occurrence: NL)
  Receive Date: 20170711
  Receipt Date: 20200807
  Transmission Date: 20201102
  Serious: Yes (Hospitalization, Other)
  Sender: FDA-Public Use
  Company Number: NL-ABBVIE-17K-114-2033753-00

PATIENT
  Age: 68 Year
  Sex: Male
  Weight: 65 kg

DRUGS (9)
  1. DUODOPA [Suspect]
     Active Substance: CARBIDOPA\LEVODOPA
     Dosage: OD: 6.0 CD: 4.4 ED: 2.0
     Route: 050
  2. MOVICOLON [Concomitant]
     Active Substance: POLYETHYLENE GLYCOL 3350\POTASSIUM CHLORIDE\SODIUM BICARBONATE\SODIUM CHLORIDE
     Indication: PRODUCT USED FOR UNKNOWN INDICATION
  3. DUODOPA [Suspect]
     Active Substance: CARBIDOPA\LEVODOPA
     Dosage: MD 6.0, CD 4.8, ED 2.0
     Route: 050
  4. RIVASTIGMINE. [Concomitant]
     Active Substance: RIVASTIGMINE
     Indication: PRODUCT USED FOR UNKNOWN INDICATION
     Route: 003
  5. MADOPAR HBS [Concomitant]
     Active Substance: BENSERAZIDE HYDROCHLORIDE\LEVODOPA
  6. DUODOPA [Suspect]
     Active Substance: CARBIDOPA\LEVODOPA
     Indication: PARKINSON^S DISEASE
     Dosage: MD: 9.0, CD: 5.5, ED: 7.0?REMAINS AT 16 HOURS
     Route: 050
     Dates: start: 20170327, end: 2017
  7. DUODOPA [Suspect]
     Active Substance: CARBIDOPA\LEVODOPA
     Dosage: MD 6, CD 5.4, ED 2
     Route: 050
     Dates: start: 2017
  8. MADOPAR HBS [Concomitant]
     Active Substance: BENSERAZIDE HYDROCHLORIDE\LEVODOPA
     Indication: PARKINSON^S DISEASE
     Dosage: FOR THE NIGHT, MADOPAR HBS
  9. MADOPAR DISPERSIBL [Concomitant]
     Active Substance: BENSERAZIDE HYDROCHLORIDE\LEVODOPA
     Indication: PARKINSON^S DISEASE
     Dosage: IF NEEDED

REACTIONS (32)
  - Memory impairment [Not Recovered/Not Resolved]
  - General physical health deterioration [Not Recovered/Not Resolved]
  - Feeling abnormal [Not Recovered/Not Resolved]
  - Fine motor skill dysfunction [Unknown]
  - Stoma site extravasation [Recovered/Resolved]
  - Dyskinesia [Recovering/Resolving]
  - Dysgraphia [Not Recovered/Not Resolved]
  - Fatigue [Unknown]
  - Depressed mood [Not Recovered/Not Resolved]
  - Infrequent bowel movements [Recovering/Resolving]
  - Fibroma [Recovered/Resolved]
  - Gait disturbance [Not Recovered/Not Resolved]
  - Fear [Unknown]
  - Stoma site erythema [Recovered/Resolved]
  - Parkinson^s disease [Unknown]
  - Fall [Recovered/Resolved]
  - Stoma site discharge [Recovered/Resolved]
  - Musculoskeletal stiffness [Unknown]
  - Poor quality sleep [Recovering/Resolving]
  - Faeces hard [Not Recovered/Not Resolved]
  - Weight abnormal [Recovered/Resolved]
  - Stoma site discharge [Recovered/Resolved]
  - Hip fracture [Not Recovered/Not Resolved]
  - Nocturia [Not Recovered/Not Resolved]
  - Fluid intake reduced [Not Recovered/Not Resolved]
  - Abnormal behaviour [Not Recovered/Not Resolved]
  - Stress [Not Recovered/Not Resolved]
  - Tension [Recovering/Resolving]
  - Psychiatric symptom [Not Recovered/Not Resolved]
  - On and off phenomenon [Not Recovered/Not Resolved]
  - Freezing phenomenon [Recovering/Resolving]
  - Hyperkinesia [Recovering/Resolving]

NARRATIVE: CASE EVENT DATE: 2017
